FAERS Safety Report 13108118 (Version 1)
Quarter: 2017Q1

REPORT INFORMATION
  Report Type: Spontaneous
  Country: US (occurrence: US)
  Receive Date: 20170112
  Receipt Date: 20170112
  Transmission Date: 20170428
  Serious: No
  Sender: FDA-Public Use
  Company Number: US-PFIZER INC-2017011335

PATIENT
  Age: 46 Year
  Sex: Male
  Weight: 132 kg

DRUGS (4)
  1. NOVOLOG [Concomitant]
     Active Substance: INSULIN ASPART
     Indication: TYPE 2 DIABETES MELLITUS
     Dosage: 20 MG, 3X/DAY
  2. GABAPENTIN. [Suspect]
     Active Substance: GABAPENTIN
     Dosage: ALMOST 700 MG, 3X/DAY (EVERY 8 HOURS)
  3. GABAPENTIN. [Suspect]
     Active Substance: GABAPENTIN
     Indication: DIABETIC NEUROPATHY
     Dosage: FOUR TO FIVE CAPSULES, 3X/DAY (EVERY 8 HOURS)
     Route: 048
     Dates: start: 201611
  4. LANTUS [Concomitant]
     Active Substance: INSULIN GLARGINE
     Indication: TYPE 2 DIABETES MELLITUS
     Dosage: 60 MG, 1X/DAY (EVERY NIGHT BEFORE GOING TO BED)

REACTIONS (2)
  - Intentional product use issue [Unknown]
  - Drug ineffective for unapproved indication [Not Recovered/Not Resolved]
